FAERS Safety Report 4955380-5 (Version None)
Quarter: 2006Q1

REPORT INFORMATION
  Report Type: 
  Country: None (occurrence: None)
  Receive Date: 20060328
  Receipt Date: 20060301
  Transmission Date: 20060701
  Serious: Yes (Other)
  Sender: FDA-Public Use
  Company Number: PHFR2006GB01233

PATIENT

DRUGS (1)
  1. CLOZARIL [Suspect]
     Route: 065

REACTIONS (2)
  - GASTRIC PH DECREASED [None]
  - SURGERY [None]
